FAERS Safety Report 5134367-6 (Version None)
Quarter: 2006Q4

REPORT INFORMATION
  Report Type: 
  Country: None (occurrence: None)
  Receive Date: 20061019
  Receipt Date: 20061004
  Transmission Date: 20070319
  Serious: Yes (Hospitalization)
  Sender: FDA-Public Use
  Company Number: 2006MP001086

PATIENT
  Age: 61 Year
  Sex: Female
  Weight: 65.7716 kg

DRUGS (7)
  1. DACOGEN [Suspect]
     Indication: MYELODYSPLASTIC SYNDROME
     Dosage: 20 MG/M**2; QD; IV
     Route: 042
     Dates: start: 20060911, end: 20060915
  2. LIPITOR [Concomitant]
  3. DIOVAN [Concomitant]
  4. SYNTHROID [Concomitant]
  5. TRAMADOL HCL [Concomitant]
  6. NEUPOGEN [Concomitant]
  7. EPOGEN [Concomitant]

REACTIONS (15)
  - ABDOMINAL PAIN [None]
  - BK VIRUS INFECTION [None]
  - BLOOD ALBUMIN DECREASED [None]
  - BLOOD CALCIUM DECREASED [None]
  - BLOOD LACTATE DEHYDROGENASE INCREASED [None]
  - BLOOD SODIUM DECREASED [None]
  - BLOOD URIC ACID INCREASED [None]
  - BLOOD URINE PRESENT [None]
  - DIARRHOEA [None]
  - HAEMODIALYSIS [None]
  - HAEMOGLOBIN DECREASED [None]
  - PLATELET COUNT DECREASED [None]
  - PROTEIN TOTAL DECREASED [None]
  - RENAL FAILURE [None]
  - WHITE BLOOD CELL COUNT DECREASED [None]
